FAERS Safety Report 13631790 (Version 1)
Quarter: 2017Q2

REPORT INFORMATION
  Report Type: Spontaneous
  Country: US (occurrence: US)
  Receive Date: 20170531
  Receipt Date: 20170531
  Transmission Date: 20170830
  Serious: No
  Sender: FDA-Public Use
  Company Number: US-ASTELLAS-1415148

PATIENT
  Sex: Female

DRUGS (6)
  1. AVASTIN [Suspect]
     Active Substance: BEVACIZUMAB
     Indication: LUNG ADENOCARCINOMA
     Dosage: 5 TREATMENTS
     Route: 065
     Dates: start: 201209, end: 201212
  2. TARCEVA [Suspect]
     Active Substance: ERLOTINIB HYDROCHLORIDE
     Indication: PRODUCT USED FOR UNKNOWN INDICATION
     Route: 065
     Dates: start: 201302
  3. PEMETREXED. [Concomitant]
     Active Substance: PEMETREXED
     Dosage: 2 CYCLES
     Route: 065
     Dates: start: 20140124
  4. AFATINIB [Concomitant]
     Active Substance: AFATINIB
     Route: 065
     Dates: start: 20130313
  5. PEMETREXED. [Concomitant]
     Active Substance: PEMETREXED
     Indication: LUNG ADENOCARCINOMA
     Dosage: 5 TREATMENTS
     Route: 065
     Dates: start: 201209, end: 201212
  6. CISPLATIN. [Concomitant]
     Active Substance: CISPLATIN
     Indication: LUNG ADENOCARCINOMA
     Dosage: 5 TRAETMENTS
     Route: 065
     Dates: start: 201209, end: 201212

REACTIONS (2)
  - Disease progression [Unknown]
  - Pulmonary mass [Unknown]
